FAERS Safety Report 5420061-0 (Version None)
Quarter: 2007Q3

REPORT INFORMATION
  Report Type: 
  Country: None (occurrence: None)
  Receive Date: 20070820
  Receipt Date: 20070808
  Transmission Date: 20080115
  Serious: Yes (Other)
  Sender: FDA-Public Use
  Company Number: US-PFIZER INC-2007066558

PATIENT
  Sex: Male
  Weight: 111.36 kg

DRUGS (4)
  1. CHANTIX [Interacting]
     Indication: SMOKING CESSATION THERAPY
     Dates: start: 20070701, end: 20070805
  2. KLONOPIN [Interacting]
     Indication: ANXIETY
  3. BENADRYL [Suspect]
     Indication: URTICARIA
  4. FENTANYL [Concomitant]
     Route: 062

REACTIONS (10)
  - ANURIA [None]
  - ANXIETY [None]
  - DRUG INTERACTION [None]
  - FATIGUE [None]
  - INSOMNIA [None]
  - MEMORY IMPAIRMENT [None]
  - PROSTATE EXAMINATION ABNORMAL [None]
  - PRURITUS [None]
  - RASH MACULAR [None]
  - URTICARIA [None]
